FAERS Safety Report 11547292 (Version 1)
Quarter: 2015Q3

REPORT INFORMATION
  Report Type: Spontaneous
  Country: CN (occurrence: CN)
  Receive Date: 20150924
  Receipt Date: 20150924
  Transmission Date: 20151125
  Serious: Yes (Other)
  Sender: FDA-Public Use
  Company Number: CN-MYLANLABS-2015M1004988

PATIENT

DRUGS (3)
  1. FONDAPARINUX [Suspect]
     Active Substance: FONDAPARINUX
     Indication: COAGULOPATHY
     Dosage: 1 DF, TID
     Route: 042
     Dates: start: 201412
  2. FRAXIPARINE                        /01437701/ [Suspect]
     Active Substance: NADROPARIN CALCIUM
     Indication: COAGULOPATHY
     Dosage: 1 DF, QD
     Route: 042
     Dates: start: 2014, end: 2014
  3. CLEXANE [Suspect]
     Active Substance: ENOXAPARIN SODIUM
     Indication: COAGULOPATHY
     Dosage: 1 DF, QD
     Route: 042
     Dates: start: 201411, end: 201411

REACTIONS (8)
  - Abortion induced [Recovered/Resolved]
  - Off label use [Unknown]
  - Injection site bruising [Recovered/Resolved]
  - Paraesthesia [Unknown]
  - Hypoaesthesia [Unknown]
  - Exposure during pregnancy [Unknown]
  - Injection site paraesthesia [Recovered/Resolved]
  - Drug ineffective [Not Recovered/Not Resolved]

NARRATIVE: CASE EVENT DATE: 2014
